FAERS Safety Report 6815099-2 (Version None)
Quarter: 2010Q3

REPORT INFORMATION
  Report Type: 
  Country: None (occurrence: None)
  Receive Date: 20100702
  Receipt Date: 20100618
  Transmission Date: 20110219
  Serious: Yes (Other)
  Sender: FDA-Public Use
  Company Number: FR-AMGEN-US389228

PATIENT
  Sex: Male

DRUGS (5)
  1. ENBREL [Suspect]
     Indication: ANKYLOSING SPONDYLITIS
     Dosage: PREFILLED SYRINGE/50 MG 1 TIME PER WEEK
     Route: 058
     Dates: start: 20100105, end: 20100119
  2. ENBREL [Suspect]
     Dosage: PREFILLED SYRINGE/50 MG 1 TIME PER WEEK
     Route: 058
     Dates: start: 20100222, end: 20100301
  3. ENBREL [Suspect]
     Route: 058
     Dates: start: 20100301
  4. DOLIPRANE [Concomitant]
     Dosage: UNKNOWN
     Dates: start: 20100122
  5. CONTRAMAL [Concomitant]
     Dosage: UNKNOWN
     Dates: start: 20100122

REACTIONS (22)
  - ARTHRALGIA [None]
  - DYSPHAGIA [None]
  - FATIGUE [None]
  - FEELING HOT [None]
  - FEELING OF BODY TEMPERATURE CHANGE [None]
  - HEADACHE [None]
  - INJECTED LIMB MOBILITY DECREASED [None]
  - INJECTION SITE HAEMATOMA [None]
  - INJECTION SITE PAIN [None]
  - INJECTION SITE SWELLING [None]
  - INJECTION SITE WARMTH [None]
  - LOSS OF CONSCIOUSNESS [None]
  - LYMPHADENOPATHY [None]
  - MUSCLE CONTRACTURE [None]
  - MUSCULOSKELETAL STIFFNESS [None]
  - NASAL CONGESTION [None]
  - NAUSEA [None]
  - NIGHT SWEATS [None]
  - PAIN IN EXTREMITY [None]
  - PYREXIA [None]
  - TONSILLAR HYPERTROPHY [None]
  - TONSILLITIS [None]
